FAERS Safety Report 9664621 (Version 1)
Quarter: 2013Q4

REPORT INFORMATION
  Report Type: Spontaneous
  Country: US (occurrence: None)
  Receive Date: 20131031
  Receipt Date: 20131031
  Transmission Date: 20140711
  Serious: Yes (Other)
  Sender: FDA-Public Use
  Company Number: None

PATIENT
  Age: 49 Year
  Sex: Female
  Weight: 66.23 kg

DRUGS (2)
  1. VENOFER [Suspect]
     Indication: ANAEMIA
     Dates: start: 20130930
  2. VENOFER [Suspect]
     Indication: MENORRHAGIA
     Dates: start: 20130930

REACTIONS (6)
  - Joint stiffness [None]
  - Pruritus [None]
  - Dyspnoea [None]
  - Feeling abnormal [None]
  - Blood pressure systolic increased [None]
  - Infusion related reaction [None]
